FAERS Safety Report 8354616-0 (Version None)
Quarter: 2012Q2

REPORT INFORMATION
  Report Type: 
  Country: None (occurrence: None)
  Receive Date: 20120511
  Receipt Date: 20120509
  Transmission Date: 20120825
  Serious: Yes (Hospitalization)
  Sender: FDA-Public Use
  Company Number: US-MERCK-1012USA03781

PATIENT
  Age: 54 Year
  Sex: Female

DRUGS (8)
  1. SYNTHROID [Concomitant]
     Route: 048
     Dates: start: 19920101
  2. LEXAPRO [Concomitant]
     Route: 065
     Dates: start: 19920101
  3. CALCIUM (UNSPECIFIED) [Concomitant]
     Route: 065
     Dates: start: 19920101
  4. FOSAMAX [Suspect]
     Indication: OSTEOPOROSIS
     Route: 048
     Dates: start: 19980401
  5. VITAMINS (UNSPECIFIED) [Concomitant]
     Route: 065
     Dates: start: 19920101
  6. VITAMIN D (UNSPECIFIED) [Concomitant]
     Route: 065
     Dates: start: 19920101
  7. FOSAMAX PLUS D [Suspect]
     Route: 048
     Dates: start: 20090818, end: 20091117
  8. PROZAC [Concomitant]
     Route: 065
     Dates: start: 19920101

REACTIONS (21)
  - TONSILLAR DISORDER [None]
  - OSTEOPENIA [None]
  - OBESITY [None]
  - RADIUS FRACTURE [None]
  - TOOTHACHE [None]
  - DEPRESSION [None]
  - ECCHYMOSIS [None]
  - HUMERUS FRACTURE [None]
  - ANXIETY [None]
  - MIGRAINE [None]
  - FEMUR FRACTURE [None]
  - VITAMIN D DEFICIENCY [None]
  - FOOT FRACTURE [None]
  - INJURY [None]
  - FALL [None]
  - HYPERSENSITIVITY [None]
  - TOOTH FRACTURE [None]
  - TOOTH DISORDER [None]
  - RIB FRACTURE [None]
  - FRACTURE DELAYED UNION [None]
  - BONE LOSS [None]
